FAERS Safety Report 12931382 (Version 2)
Quarter: 2016Q4

REPORT INFORMATION
  Report Type: Spontaneous
  Country: CO (occurrence: CO)
  Receive Date: 20161110
  Receipt Date: 20161208
  Transmission Date: 20170207
  Serious: Yes (Death)
  Sender: FDA-Public Use
  Company Number: CO-PFIZER INC-2016518472

PATIENT
  Age: 49 Year
  Sex: Female
  Weight: 75 kg

DRUGS (6)
  1. METFORMINE [Concomitant]
     Active Substance: METFORMIN HYDROCHLORIDE
     Indication: TYPE 2 DIABETES MELLITUS
     Dosage: 850 MG, DAILY
     Route: 048
     Dates: start: 20150512, end: 20161101
  2. DIHYDROCODEINE [Concomitant]
     Active Substance: DIHYDROCODEINE
     Indication: COUGH
     Dosage: 12.1 MG, EVERY 8 HOURS
     Route: 048
     Dates: start: 20161025, end: 20161101
  3. ATIVAN [Suspect]
     Active Substance: LORAZEPAM
     Indication: ANXIETY
     Dosage: 1 MG, DAILY
     Route: 048
     Dates: start: 20161031, end: 20161031
  4. LOSARTAN. [Concomitant]
     Active Substance: LOSARTAN
     Indication: HYPERTENSION
     Dosage: 50 MG, 2X/DAY
     Route: 048
     Dates: start: 20150512, end: 20161101
  5. APRACAL [Suspect]
     Active Substance: HALOPERIDOL
     Indication: ANXIETY
     Dosage: 5 MG, DAILY
     Route: 042
     Dates: start: 20161031, end: 20161031
  6. MIZOLAM /00634102/ [Suspect]
     Active Substance: MIDAZOLAM MALEATE
     Indication: ANXIETY
     Dosage: 1 MG, DAILY
     Route: 042
     Dates: start: 20161031, end: 20161031

REACTIONS (5)
  - Apnoea [Fatal]
  - Pallor [Fatal]
  - Mydriasis [None]
  - Hyperhidrosis [Fatal]
  - Cardiac arrest [None]

NARRATIVE: CASE EVENT DATE: 20161031
